FAERS Safety Report 9541508 (Version 1)
Quarter: 2013Q3

REPORT INFORMATION
  Report Type: Spontaneous
  Country: US (occurrence: None)
  Receive Date: 20130919
  Receipt Date: 20130919
  Transmission Date: 20140515
  Serious: Yes (Hospitalization)
  Sender: FDA-Public Use
  Company Number: None

PATIENT
  Age: 48 Year
  Sex: Female
  Weight: 75 kg

DRUGS (2)
  1. HYDROCODONE-ACETAMINOPHEN [Suspect]
     Indication: PAIN
     Dosage: 5 TO 7 TABLETS ONCE ORAL
     Route: 048
     Dates: start: 201210
  2. ALCOHOL [Suspect]
     Dosage: RARE ORAL?RARE ALCOHOL USE
     Route: 048

REACTIONS (1)
  - Intentional drug misuse [None]
